FAERS Safety Report 5191396-4 (Version None)
Quarter: 2006Q4

REPORT INFORMATION
  Report Type: 
  Country: None (occurrence: None)
  Receive Date: 20061220
  Receipt Date: 20061220
  Transmission Date: 20070319
  Serious: No
  Sender: FDA-Public Use
  Company Number: None

PATIENT
  Sex: Female
  Weight: 67.5 kg

DRUGS (5)
  1. CARBOPLATIN [Suspect]
     Dosage: 383 MG
  2. TAXOL [Suspect]
     Dosage: 294 MG
  3. COMPAZINE [Concomitant]
  4. PERCOCET [Concomitant]
  5. ZANTAC [Concomitant]

REACTIONS (1)
  - NEUTROPENIA [None]
